FAERS Safety Report 7574849-0 (Version None)
Quarter: 2011Q2

REPORT INFORMATION
  Report Type: 
  Country: None (occurrence: None)
  Receive Date: 20110627
  Receipt Date: 20110120
  Transmission Date: 20111010
  Serious: Yes (Hospitalization, Other)
  Sender: FDA-Public Use
  Company Number: US-BAYER-201037430NA

PATIENT
  Age: 17 Year
  Sex: Female
  Weight: 40.816 kg

DRUGS (6)
  1. TRIMETHOPRIM [Concomitant]
  2. YASMIN [Suspect]
     Indication: ACNE
     Dosage: UNK UNK, UNK
     Route: 048
     Dates: start: 20070712, end: 20071001
  3. ALBUTEROL SULFATE AUTOHALER [Concomitant]
     Indication: ASTHMA
  4. YASMIN [Suspect]
     Indication: PREMENSTRUAL SYNDROME
  5. TRINESSA [Concomitant]
  6. ORTHO TRI-CYCLEN [Concomitant]

REACTIONS (6)
  - SCAR [None]
  - MENTAL DISORDER [None]
  - CHOLECYSTITIS CHRONIC [None]
  - EMOTIONAL DISTRESS [None]
  - GALLBLADDER INJURY [None]
  - PAIN [None]
